FAERS Safety Report 5917075-0 (Version None)
Quarter: 2008Q4

REPORT INFORMATION
  Report Type: 
  Country: None (occurrence: None)
  Receive Date: 20081014
  Receipt Date: 20081001
  Transmission Date: 20090506
  Serious: Yes (Hospitalization)
  Sender: FDA-Public Use
  Company Number: FR-JNJFOC-20081002262

PATIENT
  Sex: Female

DRUGS (13)
  1. CONTRAMAL LP [Suspect]
     Indication: DRUG USE FOR UNKNOWN INDICATION
     Route: 048
  2. PREVISCAN [Interacting]
     Indication: DRUG USE FOR UNKNOWN INDICATION
     Route: 048
  3. ECONAZOLE NITRATE [Suspect]
     Indication: VULVOVAGINAL MYCOTIC INFECTION
     Route: 067
  4. DAFALGAN [Suspect]
     Route: 048
  5. DAFALGAN [Suspect]
     Indication: DRUG USE FOR UNKNOWN INDICATION
     Route: 048
  6. CORDARONE [Suspect]
     Indication: DRUG USE FOR UNKNOWN INDICATION
     Route: 065
  7. DOMPERIDONE [Concomitant]
     Route: 065
  8. PROTELOS [Concomitant]
     Route: 065
  9. CARDENSIEL [Concomitant]
     Route: 065
  10. AMLOD [Concomitant]
     Route: 065
  11. APROVEL [Concomitant]
     Route: 065
  12. EFFEXOR [Concomitant]
     Route: 065
  13. ARIMIDEX [Concomitant]
     Route: 065

REACTIONS (2)
  - DRUG INTERACTION [None]
  - INTERNATIONAL NORMALISED RATIO INCREASED [None]
